FAERS Safety Report 10036240 (Version 1)
Quarter: 2014Q1

REPORT INFORMATION
  Report Type: Spontaneous
  Country: CN (occurrence: CN)
  Receive Date: 20140325
  Receipt Date: 20140325
  Transmission Date: 20141002
  Serious: Yes (Other)
  Sender: FDA-Public Use
  Company Number: CN-BAXTER-2014BAX014074

PATIENT
  Age: 62 Year
  Sex: Male
  Weight: 65 kg

DRUGS (2)
  1. 0.9% SODIUM CHLORIDE INJECTION [Suspect]
     Indication: MEDICATION DILUTION
     Route: 041
     Dates: start: 20130725, end: 20130725
  2. TEICOPLANIN [Suspect]
     Indication: ANTI-INFECTIVE THERAPY
     Route: 041
     Dates: start: 20130725, end: 20130725

REACTIONS (3)
  - Chills [Recovering/Resolving]
  - Infusion site bruising [Recovering/Resolving]
  - Body temperature increased [Recovered/Resolved]
